FAERS Safety Report 13307594 (Version 2)
Quarter: 2017Q2

REPORT INFORMATION
  Report Type: Report from Study
  Country: US (occurrence: US)
  Receive Date: 20170308
  Receipt Date: 20170412
  Transmission Date: 20170830
  Serious: Yes (Hospitalization)
  Sender: FDA-Public Use
  Company Number: US-JNJFOC-20170204107

PATIENT
  Age: 85 Year
  Sex: Male

DRUGS (22)
  1. ACYCLOVIR. [Concomitant]
     Active Substance: ACYCLOVIR
  2. HYDROCORTISONE ACETATE. [Concomitant]
     Active Substance: HYDROCORTISONE ACETATE
  3. LORAZEPAM. [Concomitant]
     Active Substance: LORAZEPAM
  4. ALBUTEROL SULFATE. [Concomitant]
     Active Substance: ALBUTEROL SULFATE
  5. CRESTOR [Concomitant]
     Active Substance: ROSUVASTATIN CALCIUM
  6. IMBRUVICA [Suspect]
     Active Substance: IBRUTINIB
     Indication: CHRONIC LYMPHOCYTIC LEUKAEMIA
     Dosage: 420 MG, QD
     Route: 048
     Dates: start: 20170126
  7. AMBIEN [Concomitant]
     Active Substance: ZOLPIDEM TARTRATE
  8. FLOMAX [Concomitant]
     Active Substance: TAMSULOSIN HYDROCHLORIDE
  9. PIROXICAM. [Concomitant]
     Active Substance: PIROXICAM
  10. TORSEMIDE. [Concomitant]
     Active Substance: TORSEMIDE
  11. IMBRUVICA [Suspect]
     Active Substance: IBRUTINIB
     Indication: CHRONIC LYMPHOCYTIC LEUKAEMIA
     Route: 048
     Dates: start: 20170127
  12. FLUTICASONE PROPIONATE W/SALMETEROL XINAFOATE [Concomitant]
     Active Substance: FLUTICASONE PROPIONATE\SALMETEROL XINAFOATE
  13. ALDACTONE [Concomitant]
     Active Substance: SPIRONOLACTONE
  14. DIFLUCAN [Concomitant]
     Active Substance: FLUCONAZOLE
  15. FINASTERIDE. [Concomitant]
     Active Substance: FINASTERIDE
  16. HYDROCODONE/ACETAMINOPHEN [Concomitant]
     Active Substance: ACETAMINOPHEN\HYDROCODONE
  17. LOSARTAN POTASSIUM. [Concomitant]
     Active Substance: LOSARTAN POTASSIUM
  18. METOPROLOL SUCCINATE. [Concomitant]
     Active Substance: METOPROLOL SUCCINATE
  19. ALLOPURINOL. [Concomitant]
     Active Substance: ALLOPURINOL
  20. ASPIRIN. [Concomitant]
     Active Substance: ASPIRIN
  21. LIALDA [Concomitant]
     Active Substance: MESALAMINE
  22. XARELTO [Concomitant]
     Active Substance: RIVAROXABAN

REACTIONS (10)
  - Tumour lysis syndrome [Unknown]
  - Pneumonia [Not Recovered/Not Resolved]
  - Stomatitis [Not Recovered/Not Resolved]
  - Nervousness [Unknown]
  - Laboratory test abnormal [Not Recovered/Not Resolved]
  - Palpitations [Recovered/Resolved]
  - Gout [Not Recovered/Not Resolved]
  - Renal failure [Not Recovered/Not Resolved]
  - Drug intolerance [Unknown]
  - Adverse drug reaction [Unknown]

NARRATIVE: CASE EVENT DATE: 2017
